FAERS Safety Report 17522727 (Version 1)
Quarter: 2020Q1

REPORT INFORMATION
  Report Type: Spontaneous
  Country: GB (occurrence: GB)
  Receive Date: 20200310
  Receipt Date: 20200310
  Transmission Date: 20200409
  Serious: Yes (Other)
  Sender: FDA-Public Use
  Company Number: GB-PUMA BIOTECHNOLOGY, LTD.-2020GB001448

PATIENT
  Age: 59 Year
  Sex: Female

DRUGS (3)
  1. NERATINIB [Suspect]
     Active Substance: NERATINIB
     Indication: BREAST CANCER
     Dosage: 240 MG, UNKNOWN
     Route: 048
  2. LOPERAMIDE [Concomitant]
     Active Substance: LOPERAMIDE
     Indication: PROPHYLAXIS
     Dosage: 4 MG, UNK
     Route: 065
  3. BUDESONIDE. [Concomitant]
     Active Substance: BUDESONIDE
     Indication: PROPHYLAXIS
     Dosage: UNK UNK, UNKNOWN
     Route: 065

REACTIONS (3)
  - Diarrhoea [Unknown]
  - Constipation [Unknown]
  - Diverticulitis [Unknown]
